FAERS Safety Report 4442393-5 (Version None)
Quarter: 2004Q3

REPORT INFORMATION
  Report Type: 
  Country: None (occurrence: None)
  Receive Date: 20040903
  Receipt Date: 20040624
  Transmission Date: 20050211
  Serious: Yes (Other)
  Sender: FDA-Public Use
  Company Number: 2004UW13251

PATIENT
  Sex: Male

DRUGS (1)
  1. CRESTOR [Suspect]
     Dates: start: 20031201, end: 20040301

REACTIONS (4)
  - DIFFICULTY IN WALKING [None]
  - MUSCLE ENZYME INCREASED [None]
  - PAIN IN EXTREMITY [None]
  - WEIGHT DECREASED [None]
